FAERS Safety Report 6602169-7 (Version None)
Quarter: 2010Q1

REPORT INFORMATION
  Report Type: 
  Country: None (occurrence: None)
  Receive Date: 20100225
  Receipt Date: 20100215
  Transmission Date: 20100710
  Serious: Yes (Other)
  Sender: FDA-Public Use
  Company Number: IT-B.I. PHARMACEUTICALS,INC./RIDGEFIELD-2010-IT-00034IT

PATIENT
  Sex: Female

DRUGS (1)
  1. MOBIC [Suspect]
     Indication: OSTEOARTHRITIS
     Dosage: 15 MG
     Route: 048
     Dates: start: 20100105, end: 20100106

REACTIONS (4)
  - FACE OEDEMA [None]
  - LIP OEDEMA [None]
  - OCULAR HYPERAEMIA [None]
  - PARAESTHESIA ORAL [None]
